FAERS Safety Report 10796033 (Version 2)
Quarter: 2015Q3

REPORT INFORMATION
  Report Type: Spontaneous
  Country: GB (occurrence: GB)
  Receive Date: 20150216
  Receipt Date: 20150717
  Transmission Date: 20151125
  Serious: Yes (Hospitalization)
  Sender: FDA-Public Use
  Company Number: GB-ACCORD-028611

PATIENT
  Age: 73 Year
  Sex: Male

DRUGS (12)
  1. SIMVASTATIN. [Concomitant]
     Active Substance: SIMVASTATIN
  2. ZOLADEX LA [Concomitant]
     Active Substance: GOSERELIN ACETATE
  3. CREON [Concomitant]
     Active Substance: PANCRELIPASE AMYLASE\PANCRELIPASE LIPASE\PANCRELIPASE PROTEASE
  4. FUROSEMIDE. [Concomitant]
     Active Substance: FUROSEMIDE
  5. OMEPRAZOLE. [Concomitant]
     Active Substance: OMEPRAZOLE
  6. DIGOXIN. [Concomitant]
     Active Substance: DIGOXIN
  7. BISOPROLOL [Concomitant]
     Active Substance: BISOPROLOL
  8. BICALUTAMIDE. [Suspect]
     Active Substance: BICALUTAMIDE
     Indication: PROSTATE CANCER
     Route: 048
     Dates: start: 20141229, end: 20150129
  9. WARFARIN [Concomitant]
     Active Substance: WARFARIN
  10. IRON [Concomitant]
     Active Substance: IRON
  11. SPIRONOLACTONE. [Concomitant]
     Active Substance: SPIRONOLACTONE
  12. RAMIPRIL. [Concomitant]
     Active Substance: RAMIPRIL

REACTIONS (2)
  - Liver function test abnormal [Unknown]
  - Jaundice [Unknown]

NARRATIVE: CASE EVENT DATE: 20150129
